FAERS Safety Report 8034048 (Version 2)
Quarter: 2013Q3

REPORT INFORMATION
  Report Type: Report from Study
  Country: MX (occurrence: MX)
  Receive Date: 20110713
  Receipt Date: 20130926
  Transmission Date: 20140515
  Serious: Yes (Other)
  Sender: FDA-Public Use
  Company Number: PHHY2011MX53067

PATIENT
  Age: 64 Year
  Sex: Female

DRUGS (3)
  1. DIOVAN [Suspect]
     Indication: HYPERTENSION
     Dosage: 1 DF (160MG), DAILY
     Route: 048
     Dates: start: 201103, end: 201104
  2. DIOVAN [Suspect]
     Dosage: 2 DF, PRN
  3. CO-DIOVAN [Suspect]
     Dosage: 2 DF, DAILY
     Dates: start: 201104, end: 201106

REACTIONS (5)
  - Asphyxia [Not Recovered/Not Resolved]
  - Blood pressure increased [Recovered/Resolved]
  - Dyspnoea [Not Recovered/Not Resolved]
  - Local swelling [Not Recovered/Not Resolved]
  - Headache [Not Recovered/Not Resolved]
